FAERS Safety Report 8575590-8 (Version None)
Quarter: 2012Q3

REPORT INFORMATION
  Report Type: 
  Country: None (occurrence: None)
  Receive Date: 20120807
  Receipt Date: 20120730
  Transmission Date: 20120928
  Serious: Yes (Other)
  Sender: FDA-Public Use
  Company Number: US-ASTELLAS-2012US006596

PATIENT

DRUGS (1)
  1. VESICARE [Suspect]
     Indication: HYPERTONIC BLADDER
     Dosage: 5 MG, UID/QD
     Route: 048
     Dates: start: 20120701

REACTIONS (5)
  - WEIGHT DECREASED [None]
  - SKIN DISCOLOURATION [None]
  - FATIGUE [None]
  - DRY MOUTH [None]
  - VISION BLURRED [None]
